FAERS Safety Report 19913202 (Version 1)
Quarter: 2021Q4

REPORT INFORMATION
  Report Type: Spontaneous
  Country: KR (occurrence: KR)
  Receive Date: 20211004
  Receipt Date: 20211004
  Transmission Date: 20220303
  Serious: Yes (Other)
  Sender: FDA-Public Use
  Company Number: KR-VIIV HEALTHCARE ULC-KR2021APC204117

PATIENT
  Age: 53 Year
  Sex: Male
  Weight: 83 kg

DRUGS (7)
  1. KIVEXA [Suspect]
     Active Substance: ABACAVIR SULFATE\LAMIVUDINE
     Indication: HIV infection
     Dosage: UNK
     Route: 048
     Dates: start: 20121204
  2. BEVACIZUMAB [Concomitant]
     Active Substance: BEVACIZUMAB
     Indication: Retinal detachment
     Dosage: UNK
     Route: 030
     Dates: start: 20160111, end: 20160111
  3. DESONIDE [Concomitant]
     Active Substance: DESONIDE
     Indication: Pruritus
     Dosage: UNK, LOTION
     Route: 061
     Dates: start: 20130822, end: 20160105
  4. EFAVIRENZ [Concomitant]
     Active Substance: EFAVIRENZ
     Indication: HIV infection
     Dosage: UNK
     Dates: start: 20051128
  5. LEVOFLOXACIN [Concomitant]
     Active Substance: LEVOFLOXACIN
     Indication: Retinal detachment
     Dosage: UNK
     Route: 050
     Dates: start: 20160111, end: 20160403
  6. PRAVASTATIN [Concomitant]
     Active Substance: PRAVASTATIN
     Indication: Hyperlipidaemia
     Dosage: UNK
     Route: 048
     Dates: start: 20101229
  7. PROPARACAINE HYDROCHLORIDE [Concomitant]
     Active Substance: PROPARACAINE HYDROCHLORIDE
     Indication: Retinal detachment
     Dosage: UNK
     Route: 050
     Dates: start: 20160111, end: 20160111

REACTIONS (5)
  - Retinal detachment [Recovered/Resolved]
  - Macular oedema [Recovered/Resolved]
  - Depression [Not Recovered/Not Resolved]
  - Insomnia [Not Recovered/Not Resolved]
  - Periodontitis [Recovered/Resolved]

NARRATIVE: CASE EVENT DATE: 20160108
